FAERS Safety Report 7499025-1 (Version None)
Quarter: 2011Q2

REPORT INFORMATION
  Report Type: 
  Country: None (occurrence: None)
  Receive Date: 20110524
  Receipt Date: 20090930
  Transmission Date: 20111010
  Serious: Yes (Other)
  Sender: FDA-Public Use
  Company Number: US-BAYER-200934732NA

PATIENT
  Age: 58 Year
  Sex: Female
  Weight: 67 kg

DRUGS (11)
  1. MOBIC [Concomitant]
     Dosage: UNK
     Route: 048
     Dates: start: 20051001
  2. TRASYLOL [Suspect]
     Indication: CORONARY ARTERY BYPASS
     Dosage: 100 CC FOLLOWED BY AN IV DRIP AT 25CC PER HOUR
     Route: 042
     Dates: start: 20061025, end: 20061025
  3. PROTAMINE SULFATE [Concomitant]
     Dosage: 30 ML, UNK
     Route: 042
     Dates: end: 20061025
  4. TRAMADOL HCL [Concomitant]
     Dosage: UNK
     Route: 048
     Dates: start: 20051001
  5. TRASYLOL [Suspect]
     Indication: MITRAL VALVE REPLACEMENT
  6. LASIX [Concomitant]
     Route: 048
  7. ANGIOTENSIN II [Concomitant]
     Route: 048
  8. EPINEPHRINE [Concomitant]
     Dosage: UNK
     Dates: start: 20061025, end: 20061025
  9. VERSED [Concomitant]
     Dosage: UNK
     Dates: start: 20061025, end: 20061025
  10. VANCOMYCIN [Concomitant]
     Dosage: 1 G, UNK
     Route: 042
     Dates: start: 20061025, end: 20061025
  11. HEPARIN [Concomitant]
     Dosage: UNK
     Dates: start: 20061025, end: 20061025

REACTIONS (9)
  - INJURY [None]
  - UNEVALUABLE EVENT [None]
  - ANHEDONIA [None]
  - DEPRESSION [None]
  - ANXIETY [None]
  - DYSPNOEA [None]
  - RENAL FAILURE [None]
  - FEAR [None]
  - PAIN [None]
